FAERS Safety Report 7002138-1 (Version None)
Quarter: 2010Q3

REPORT INFORMATION
  Report Type: 
  Country: None (occurrence: None)
  Receive Date: 20100917
  Receipt Date: 20100917
  Transmission Date: 20110219
  Serious: No
  Sender: FDA-Public Use
  Company Number: None

PATIENT
  Sex: Female
  Weight: 113.3993 kg

DRUGS (2)
  1. RITUXAN [Suspect]
     Indication: RHEUMATOID ARTHRITIS
     Dosage: 1,000 MG 1 DOSE X 2WKS APART, THEN Q6 MONTHS X 2 IV
     Route: 042
     Dates: start: 20070701, end: 20100701
  2. METHOTREXATE [Concomitant]

REACTIONS (1)
  - CYSTITIS [None]
